FAERS Safety Report 7105957-6 (Version None)
Quarter: 2010Q4

REPORT INFORMATION
  Report Type: 
  Country: None (occurrence: None)
  Receive Date: 20101116
  Receipt Date: 20101105
  Transmission Date: 20110411
  Serious: Yes (Other)
  Sender: FDA-Public Use
  Company Number: CA-JNJFOC-20101103273

PATIENT
  Sex: Female

DRUGS (4)
  1. SIMPONI [Suspect]
     Indication: RHEUMATOID ARTHRITIS
     Route: 058
  2. LEFLUNOMIDE [Concomitant]
     Route: 048
  3. HYDROXYCHLOROQUINE [Concomitant]
  4. NAPROXEN [Concomitant]

REACTIONS (1)
  - LUNG DISORDER [None]
